FAERS Safety Report 8254940-6 (Version None)
Quarter: 2012Q2

REPORT INFORMATION
  Report Type: 
  Country: None (occurrence: None)
  Receive Date: 20120403
  Receipt Date: 20120328
  Transmission Date: 20120825
  Serious: No
  Sender: FDA-Public Use
  Company Number: US-PFIZER INC-2012080083

PATIENT
  Age: 77 Year
  Sex: Male
  Weight: 60.771 kg

DRUGS (13)
  1. LEVOTHROID [Concomitant]
     Indication: HYPERTENSION
     Dosage: 0.075 MG, UNK
  2. FOLIC ACID [Concomitant]
     Indication: IRON DEFICIENCY
     Dosage: 500 MG, UNK
  3. GLIPIZIDE [Concomitant]
     Indication: TYPE 2 DIABETES MELLITUS
     Dosage: 2.5 MG, 3X/DAY
  4. FLUTICASONE [Concomitant]
     Indication: NASAL DISORDER
     Dosage: 50 UG, 1X/DAY
  5. TERAZOSIN [Concomitant]
     Indication: HYPERTENSION
     Dosage: 2 MG, UNK
  6. FERROUS SULFATE [Concomitant]
     Indication: IRON DEFICIENCY
     Dosage: 142 MG, UNK
  7. VITAMIN D [Concomitant]
     Indication: VITAMIN D DEFICIENCY
     Dosage: 2000 IU, UNK
  8. HYDRALAZINE [Concomitant]
     Indication: HYPERTENSION
     Dosage: 50 MG, UNK
  9. METFORMIN [Concomitant]
     Indication: TYPE 2 DIABETES MELLITUS
     Dosage: 500 MG, UNK
  10. VIAGRA [Suspect]
     Indication: ERECTILE DYSFUNCTION
     Dosage: 100 MG, WEEKLY (ONCE A WEEK)
     Route: 048
     Dates: start: 20110101
  11. LISINOPRIL [Concomitant]
     Indication: HYPERTENSION
     Dosage: 20 MG, 2X/DAY
  12. METOPROLOL [Concomitant]
     Indication: HYPERTENSION
     Dosage: 25 MG, 2X/DAY
  13. LIPITOR [Concomitant]
     Indication: BLOOD CHOLESTEROL INCREASED
     Dosage: 40 MG, UNK

REACTIONS (1)
  - ABDOMINAL PAIN UPPER [None]
